FAERS Safety Report 11846936 (Version 2)
Quarter: 2018Q3

REPORT INFORMATION
  Report Type: Report from Study
  Country: US (occurrence: US)
  Receive Date: 20151217
  Receipt Date: 20180815
  Transmission Date: 20181010
  Serious: Yes (Death, Hospitalization)
  Sender: FDA-Public Use
  Company Number: US-KERYX BIOPHARMACEUTICALS, INC.-2015US001351

PATIENT
  Age: 47 Year
  Sex: Male

DRUGS (1)
  1. AURYXIA [Suspect]
     Active Substance: TETRAFERRIC TRICITRATE DECAHYDRATE
     Indication: PRODUCT USED FOR UNKNOWN INDICATION
     Dosage: 3+ TAB, QD
     Route: 048
     Dates: start: 20150902, end: 20151024

REACTIONS (4)
  - Procedural complication [Unknown]
  - Condition aggravated [Unknown]
  - Skin exfoliation [Unknown]
  - Cardiac death [Fatal]

NARRATIVE: CASE EVENT DATE: 20151026
